FAERS Safety Report 4422109-9 (Version None)
Quarter: 2004Q3

REPORT INFORMATION
  Report Type: 
  Country: None (occurrence: None)
  Receive Date: 20040805
  Receipt Date: 20040727
  Transmission Date: 20050211
  Serious: Yes (Hospitalization, Other)
  Sender: FDA-Public Use
  Company Number: 2004225745US

PATIENT
  Sex: Female

DRUGS (2)
  1. PROVERA [Suspect]
     Indication: MENOPAUSAL SYMPTOMS
  2. PREMARIN [Suspect]
     Indication: MENOPAUSAL SYMPTOMS

REACTIONS (3)
  - BREAST CANCER [None]
  - COLON CANCER METASTATIC [None]
  - OESTROGEN RECEPTOR ASSAY POSITIVE [None]
